FAERS Safety Report 7690173-X (Version None)
Quarter: 2011Q3

REPORT INFORMATION
  Report Type: 
  Country: None (occurrence: None)
  Receive Date: 20110818
  Receipt Date: 20110809
  Transmission Date: 20111222
  Serious: Yes (Other)
  Sender: FDA-Public Use
  Company Number: DE-JNJFOC-20110706323

PATIENT
  Sex: Female

DRUGS (4)
  1. IMODIUM A-D EZ CHEWS [Suspect]
     Route: 048
  2. IMODIUM MULTI-SYMPTOM RELIEF [Suspect]
     Indication: DIARRHOEA
     Dosage: 2MG/ 125 MG/ CHEWABLE TABLET
     Route: 048
  3. IMODIUM MULTI-SYMPTOM RELIEF [Suspect]
     Route: 048
  4. IMODIUM A-D EZ CHEWS [Suspect]
     Indication: DIARRHOEA
     Dosage: 2MG/ TABLET
     Route: 048
     Dates: start: 20110101, end: 20110101

REACTIONS (1)
  - HYPOAESTHESIA [None]
